FAERS Safety Report 4437549-1 (Version None)
Quarter: 2004Q3

REPORT INFORMATION
  Report Type: 
  Country: None (occurrence: None)
  Receive Date: 20040830
  Receipt Date: 20040830
  Transmission Date: 20050211
  Serious: Yes (Life-Threatening)
  Sender: FDA-Public Use
  Company Number: None

PATIENT
  Age: 6 Year
  Sex: Male
  Weight: 18.1439 kg

DRUGS (1)
  1. ADDERALL 10 [Suspect]
     Dates: start: 19990304, end: 20001020

REACTIONS (1)
  - SUICIDE ATTEMPT [None]
